FAERS Safety Report 18623770 (Version 1)
Quarter: 2020Q4

REPORT INFORMATION
  Report Type: Spontaneous
  Country: US (occurrence: US)
  Receive Date: 20201216
  Receipt Date: 20201216
  Transmission Date: 20210114
  Serious: Yes (Hospitalization)
  Sender: FDA-Public Use
  Company Number: US-GW PHARMA-202012USGW04295

PATIENT

DRUGS (1)
  1. EPIDIOLEX [Suspect]
     Active Substance: CANNABIDIOL
     Indication: LENNOX-GASTAUT SYNDROME
     Dosage: 500 MILLIGRAM, BID (EVERY MORNING AND EVENING) FIRST SHIPPED ON 19 MAR 2019
     Route: 048
     Dates: start: 201903

REACTIONS (5)
  - Lethargy [Unknown]
  - Product dose omission issue [Unknown]
  - Muscular weakness [Unknown]
  - Hospitalisation [Unknown]
  - Asthenia [Unknown]
